FAERS Safety Report 8289548-X (Version None)
Quarter: 2012Q2

REPORT INFORMATION
  Report Type: 
  Country: None (occurrence: None)
  Receive Date: 20120417
  Receipt Date: 20120406
  Transmission Date: 20120825
  Serious: Yes (Other)
  Sender: FDA-Public Use
  Company Number: CH-BRISTOL-MYERS SQUIBB COMPANY-16507451

PATIENT
  Age: 77 Year
  Sex: Male
  Weight: 60 kg

DRUGS (6)
  1. ATAZANAVIR [Suspect]
     Indication: HIV INFECTION
     Dosage: 1 DF: 300UNIT NOS
     Route: 048
     Dates: start: 20110309, end: 20120210
  2. RITONAVIR [Concomitant]
     Dates: start: 20110309, end: 20120210
  3. HYDROCHLOROTHIAZIDE [Suspect]
     Indication: HYPERTENSION
     Dosage: 1 DF: 12.5 UNIT NOS
     Route: 048
     Dates: start: 20100101, end: 20120210
  4. TRUVADA [Suspect]
     Indication: HIV INFECTION
     Route: 048
     Dates: start: 20110309, end: 20120210
  5. ROSUVASTATIN CALCIUM [Concomitant]
     Dates: start: 20110309, end: 20120210
  6. QUINAPRIL [Suspect]
     Indication: HYPERTENSION
     Dosage: 1 DF: 10UNIT NOS
     Route: 048
     Dates: start: 20100101, end: 20120210

REACTIONS (3)
  - OVERDOSE [None]
  - RENAL IMPAIRMENT [None]
  - UNDERDOSE [None]
